FAERS Safety Report 20036461 (Version 1)
Quarter: 2021Q4

REPORT INFORMATION
  Report Type: Spontaneous
  Country: US (occurrence: US)
  Receive Date: 20211105
  Receipt Date: 20211105
  Transmission Date: 20220303
  Serious: No
  Sender: FDA-Public Use
  Company Number: US-SANOFI-00829249

PATIENT
  Sex: Female

DRUGS (1)
  1. DUPIXENT [Suspect]
     Active Substance: DUPILUMAB
     Indication: Cold urticaria
     Dosage: UNK

REACTIONS (4)
  - Pruritus [Unknown]
  - Erythema [Unknown]
  - Discomfort [Unknown]
  - Product use in unapproved indication [Unknown]
